FAERS Safety Report 5725003-6 (Version None)
Quarter: 2008Q2

REPORT INFORMATION
  Report Type: 
  Country: None (occurrence: None)
  Receive Date: 20080501
  Receipt Date: 20080428
  Transmission Date: 20081010
  Serious: Yes (Other)
  Sender: FDA-Public Use
  Company Number: FR-ROCHE-557239

PATIENT
  Sex: Female
  Weight: 52 kg

DRUGS (3)
  1. XELODA [Suspect]
     Route: 048
     Dates: start: 20070201
  2. XELODA [Suspect]
     Dosage: DOSAGE REDUCED.
     Route: 048
  3. HERCEPTIN [Suspect]
     Route: 065
     Dates: start: 20030101

REACTIONS (2)
  - PALMAR-PLANTAR ERYTHRODYSAESTHESIA SYNDROME [None]
  - PYOGENIC GRANULOMA [None]
